FAERS Safety Report 7178766-X (Version None)
Quarter: 2010Q4

REPORT INFORMATION
  Report Type: 
  Country: None (occurrence: None)
  Receive Date: 20101221
  Receipt Date: 20101213
  Transmission Date: 20110411
  Serious: Yes (Hospitalization)
  Sender: FDA-Public Use
  Company Number: US-US-EMD SERONO, INC.-7002286

PATIENT
  Sex: Male

DRUGS (3)
  1. REBIF [Suspect]
     Indication: MULTIPLE SCLEROSIS
     Route: 058
     Dates: start: 20090605, end: 20100501
  2. LOPRESSOR [Concomitant]
     Indication: ATRIAL FIBRILLATION
  3. OXYBUTYNIN [Concomitant]
     Indication: URINARY RETENTION

REACTIONS (4)
  - CONVULSION [None]
  - MULTIPLE SCLEROSIS RELAPSE [None]
  - STRESS [None]
  - URINARY TRACT INFECTION [None]
